FAERS Safety Report 6572683-1 (Version None)
Quarter: 2010Q1

REPORT INFORMATION
  Report Type: 
  Country: None (occurrence: None)
  Receive Date: 20100205
  Receipt Date: 20100122
  Transmission Date: 20100710
  Serious: Yes (Hospitalization, Other)
  Sender: FDA-Public Use
  Company Number: US-TYCO HEALTHCARE/MALLINCKRODT-T201000538

PATIENT
  Age: 55 Year
  Sex: Male

DRUGS (4)
  1. FLUOXETINE [Suspect]
     Dosage: 20 MG OD
  2. DESIPRAMINE [Concomitant]
     Dosage: 25 MG OD
  3. PHENAZOPYRIDINE HCL TAB [Concomitant]
     Dosage: 100 MG, TID
  4. OXYCODONE HCL [Concomitant]
     Dosage: 5 MG, PRN

REACTIONS (19)
  - ABDOMINAL PAIN [None]
  - BLOOD OSMOLARITY DECREASED [None]
  - COLITIS [None]
  - CYSTITIS [None]
  - DECREASED APPETITE [None]
  - DIZZINESS [None]
  - FATIGUE [None]
  - HEADACHE [None]
  - HYPONATRAEMIA [None]
  - HYPOPITUITARISM [None]
  - HYPOVOLAEMIA [None]
  - INAPPROPRIATE ANTIDIURETIC HORMONE SECRETION [None]
  - LIBIDO DECREASED [None]
  - MYALGIA [None]
  - PROSTATOMEGALY [None]
  - SECONDARY ADRENOCORTICAL INSUFFICIENCY [None]
  - SUICIDAL IDEATION [None]
  - URINARY TRACT INFECTION [None]
  - WEIGHT DECREASED [None]
